FAERS Safety Report 6402040-X (Version None)
Quarter: 2009Q4

REPORT INFORMATION
  Report Type: 
  Country: None (occurrence: None)
  Receive Date: 20091015
  Receipt Date: 20091005
  Transmission Date: 20100525
  Serious: Yes (Other)
  Sender: FDA-Public Use
  Company Number: GB-PFIZER INC-2009258434

PATIENT
  Age: 65 Year

DRUGS (1)
  1. DETRUSITOL [Suspect]
     Dosage: 2 MG, 2X/DAY

REACTIONS (1)
  - GASTROINTESTINAL TUBE INSERTION [None]
